FAERS Safety Report 12968713 (Version 1)
Quarter: 2016Q4

REPORT INFORMATION
  Report Type: Spontaneous
  Country: CL (occurrence: CL)
  Receive Date: 20161123
  Receipt Date: 20161123
  Transmission Date: 20170207
  Serious: Yes (Death, Hospitalization)
  Sender: FDA-Public Use
  Company Number: PHHY2016CL158999

PATIENT
  Age: 70 Year
  Sex: Male

DRUGS (1)
  1. VOTRIENT [Suspect]
     Active Substance: PAZOPANIB HYDROCHLORIDE
     Indication: RENAL CANCER METASTATIC
     Dosage: 800 MG, QD
     Route: 048
     Dates: start: 20161018, end: 20161102

REACTIONS (4)
  - Pneumonia [Fatal]
  - Urinary tract infection [Fatal]
  - General physical health deterioration [Fatal]
  - Pyrexia [Fatal]

NARRATIVE: CASE EVENT DATE: 20161031
